FAERS Safety Report 14262249 (Version 2)
Quarter: 2017Q4

REPORT INFORMATION
  Report Type: Spontaneous
  Country: BR (occurrence: BR)
  Receive Date: 20171208
  Receipt Date: 20171218
  Transmission Date: 20180321
  Serious: Yes (Other)
  Sender: FDA-Public Use
  Company Number: BR-PFIZER INC-2017245587

PATIENT
  Age: 81 Year
  Sex: Female

DRUGS (2)
  1. FRONTAL [Suspect]
     Active Substance: ALPRAZOLAM
     Dosage: 2 MG, 1X/DAY (AT NIGHT)
     Dates: start: 2008
  2. FRONTAL [Suspect]
     Active Substance: ALPRAZOLAM
     Indication: SLEEP DISORDER
     Dosage: UNK

REACTIONS (5)
  - Joint dislocation [Unknown]
  - Fall [Unknown]
  - Nervousness [Unknown]
  - Drug hypersensitivity [Not Recovered/Not Resolved]
  - Insomnia [Not Recovered/Not Resolved]

NARRATIVE: CASE EVENT DATE: 201703
